FAERS Safety Report 15403084 (Version 1)
Quarter: 2018Q3

REPORT INFORMATION
  Report Type: Report from Study
  Country: US (occurrence: US)
  Receive Date: 20180919
  Receipt Date: 20180919
  Transmission Date: 20181010
  Serious: Yes (Hospitalization)
  Sender: FDA-Public Use
  Company Number: PHEH2018US037399

PATIENT
  Sex: Male

DRUGS (1)
  1. ENTRESTO [Suspect]
     Active Substance: SACUBITRIL\VALSARTAN
     Indication: CARDIAC FAILURE
     Dosage: 0.5 DF (49 MG SACUBITRIL AND 51 MG VALSARTAN), BID
     Route: 065

REACTIONS (5)
  - Dizziness [Unknown]
  - Drug prescribing error [Unknown]
  - Loss of consciousness [Unknown]
  - Abdominal distension [Unknown]
  - Wrong technique in product usage process [Unknown]
